FAERS Safety Report 5690626-X (Version None)
Quarter: 2008Q2

REPORT INFORMATION
  Report Type: 
  Country: None (occurrence: None)
  Receive Date: 20080401
  Receipt Date: 20080326
  Transmission Date: 20081010
  Serious: Yes (Death, Other)
  Sender: FDA-Public Use
  Company Number: FR-BRISTOL-MYERS SQUIBB COMPANY-14131619

PATIENT
  Age: 81 Year
  Sex: Male

DRUGS (11)
  1. GLUCOPHAGE [Suspect]
     Indication: TYPE 2 DIABETES MELLITUS
     Dosage: STRENGTH-1000 MG.
     Route: 048
  2. GLUCOR 100 [Concomitant]
  3. CELECTOL [Concomitant]
  4. FUROSEMIDE [Concomitant]
  5. CAPTEA [Concomitant]
  6. TAHOR [Concomitant]
  7. PERMIXON [Concomitant]
  8. TIAPRIDAL [Concomitant]
  9. VITAMIN B COMPLEX CAP [Concomitant]
  10. FLUOXETINE [Concomitant]
  11. DUPHALAC [Concomitant]

REACTIONS (2)
  - LACTIC ACIDOSIS [None]
  - RENAL FAILURE ACUTE [None]
